FAERS Safety Report 5208731-0 (Version None)
Quarter: 2007Q1

REPORT INFORMATION
  Report Type: 
  Country: None (occurrence: None)
  Receive Date: 20070111
  Receipt Date: 20070111
  Transmission Date: 20070707
  Serious: No
  Sender: FDA-Public Use
  Company Number: None

PATIENT
  Age: 32 Year
  Sex: Female
  Weight: 54.4316 kg

DRUGS (3)
  1. ZICAM COLD REMEDY SWABS [Suspect]
     Indication: NASOPHARYNGITIS
     Dosage: SWAB NOSTRIL TWICE DAILY TOPICAL
     Route: 061
     Dates: start: 20061229, end: 20070108
  2. AVELOX [Concomitant]
  3. IBUPROFEN [Concomitant]

REACTIONS (1)
  - ANOSMIA [None]
